FAERS Safety Report 5103735-0 (Version None)
Quarter: 2006Q3

REPORT INFORMATION
  Report Type: 
  Country: None (occurrence: None)
  Receive Date: 20060913
  Receipt Date: 20060516
  Transmission Date: 20061208
  Serious: Yes (Hospitalization)
  Sender: FDA-Public Use
  Company Number: PHBS2006DE07417

PATIENT
  Age: 47 Year
  Sex: Male
  Weight: 54 kg

DRUGS (17)
  1. SANDIMMUNE [Suspect]
     Indication: LIVER TRANSPLANT
     Dosage: 200 MG, BID
     Route: 048
  2. SANDIMMUNE [Suspect]
     Dosage: 150 MG, BID
     Route: 048
  3. SANDIMMUNE [Suspect]
     Dosage: 125 MG, BID
     Route: 048
  4. SANDIMMUNE [Suspect]
     Dosage: 100 MG, BID
     Route: 048
  5. SANDIMMUNE [Suspect]
     Dosage: 75 MG, BID
     Route: 048
  6. SANDIMMUNE [Suspect]
     Dosage: 150 MG, BID
     Route: 048
  7. SEMPERA [Suspect]
     Dosage: 200 MG, BID
     Route: 048
  8. URBASON [Suspect]
     Indication: LIVER TRANSPLANT
     Dosage: 30 MG/D
     Route: 048
  9. IMUREK [Concomitant]
     Indication: LIVER TRANSPLANT
     Dosage: 100 MG/D
     Route: 048
  10. BROMUC [Concomitant]
     Dosage: 0.2 G, BID
     Route: 048
  11. LASIX [Concomitant]
     Dosage: 20 MG, BID
     Route: 048
  12. PANTOZOL [Concomitant]
     Dosage: 40 MG/D
     Route: 048
  13. VOLTAREN [Suspect]
     Indication: PAIN
     Dosage: 50 MG, QD
     Route: 048
  14. FRAGMIN P [Concomitant]
  15. KEPINOL [Concomitant]
     Dosage: 1 DF, Q48H
     Route: 048
  16. CLONT [Concomitant]
     Dosage: 400 MG, TID
     Route: 048
  17. BAYPEN [Concomitant]
     Dosage: 4 G, TID

REACTIONS (12)
  - BLOOD PRESSURE INCREASED [None]
  - BLOOD UREA INCREASED [None]
  - DECUBITUS ULCER [None]
  - DEHYDRATION [None]
  - DRUG INTERACTION [None]
  - DRUG LEVEL INCREASED [None]
  - IMMUNOSUPPRESSANT DRUG LEVEL INCREASED [None]
  - NEUROTOXICITY [None]
  - SEROMA [None]
  - SURGERY [None]
  - SUTURE RUPTURE [None]
  - WOUND DEHISCENCE [None]
